FAERS Safety Report 5253474-0 (Version None)
Quarter: 2007Q1

REPORT INFORMATION
  Report Type: 
  Country: None (occurrence: None)
  Receive Date: 20070301
  Receipt Date: 20070216
  Transmission Date: 20070707
  Serious: Yes (Other)
  Sender: FDA-Public Use
  Company Number: US-ELI_LILLY_AND_COMPANY-US200702004344

PATIENT
  Sex: Female

DRUGS (5)
  1. CYMBALTA [Suspect]
     Dosage: 60 MG, OTHER
  2. CYMBALTA [Suspect]
     Dosage: 30 MG, OTHER
  3. LYRICA [Concomitant]
  4. GABITRIL [Concomitant]
  5. LORTAB [Concomitant]

REACTIONS (2)
  - CONVULSION [None]
  - SURGERY [None]
